FAERS Safety Report 9868599 (Version 1)
Quarter: 2014Q1

REPORT INFORMATION
  Report Type: Spontaneous
  Country: US (occurrence: US)
  Receive Date: 20140204
  Receipt Date: 20140204
  Transmission Date: 20141002
  Serious: Yes (Other)
  Sender: FDA-Public Use
  Company Number: US-MYLANLABS-2014S1001682

PATIENT
  Age: 70 Year
  Sex: Male

DRUGS (4)
  1. ALLOPURINOL [Suspect]
     Route: 065
  2. METOPROLOL [Concomitant]
     Route: 050
  3. FERROUS SULFATE [Concomitant]
     Route: 050
  4. LANSOPRAZOLE [Concomitant]
     Route: 050

REACTIONS (2)
  - Oesophageal stenosis [Recovering/Resolving]
  - Toxic epidermal necrolysis [Unknown]
